FAERS Safety Report 18930208 (Version 1)
Quarter: 2021Q1

REPORT INFORMATION
  Report Type: Other
  Country: CA (occurrence: CA)
  Receive Date: 20210224
  Receipt Date: 20210224
  Transmission Date: 20210420
  Serious: Yes (Hospitalization)
  Sender: FDA-Public Use
  Company Number: CA-CELLTRION INC.-2021CA002232

PATIENT

DRUGS (4)
  1. RITUXIMAB (UNKNOWN) [Suspect]
     Active Substance: RITUXIMAB
     Indication: GLOMERULONEPHRITIS
     Dosage: UNK, 1 EVERY 1 WEEK
     Route: 041
  2. CALCIUM [Concomitant]
     Active Substance: CALCIUM
  3. FOSAMAX [Concomitant]
     Active Substance: ALENDRONATE SODIUM
  4. DAPSONE. [Concomitant]
     Active Substance: DAPSONE

REACTIONS (2)
  - Diverticulitis [Unknown]
  - Off label use [Unknown]
